FAERS Safety Report 13790393 (Version 3)
Quarter: 2017Q4

REPORT INFORMATION
  Report Type: Report from Study
  Country: CO (occurrence: CO)
  Receive Date: 20170725
  Receipt Date: 20171002
  Transmission Date: 20180320
  Serious: Yes (Other)
  Sender: FDA-Public Use
  Company Number: CO-BIOGEN-2017BI00436949

PATIENT
  Age: 16 Year
  Sex: Male

DRUGS (1)
  1. TYSABRI [Suspect]
     Active Substance: NATALIZUMAB
     Indication: MULTIPLE SCLEROSIS
     Dosage: INFUSED OVER 1 HOUR
     Route: 042
     Dates: start: 20150415

REACTIONS (7)
  - Asthenia [Unknown]
  - Melaena [Unknown]
  - Drug administered to patient of inappropriate age [Recovered/Resolved]
  - Spinal pain [Unknown]
  - Headache [Recovered/Resolved]
  - Pain in extremity [Unknown]
  - Fatigue [Recovered/Resolved]

NARRATIVE: CASE EVENT DATE: 20150415
